FAERS Safety Report 4754443-7 (Version None)
Quarter: 2005Q3

REPORT INFORMATION
  Report Type: 
  Country: None (occurrence: None)
  Receive Date: 20050829
  Receipt Date: 20050818
  Transmission Date: 20060218
  Serious: Yes (Life-Threatening)
  Sender: FDA-Public Use
  Company Number: GB-BOEHRINGER INGELHEIM PHARMACEUTICALS, INC.-2005-UK-01598UK

PATIENT

DRUGS (1)
  1. ATROVENT [Suspect]

REACTIONS (1)
  - ANAPHYLACTIC SHOCK [None]
